FAERS Safety Report 9414616 (Version 1)
Quarter: 2013Q3

REPORT INFORMATION
  Report Type: Spontaneous
  Country: KR (occurrence: KR)
  Receive Date: 20130723
  Receipt Date: 20130723
  Transmission Date: 20140515
  Serious: Yes (Hospitalization)
  Sender: FDA-Public Use
  Company Number: KR-B.I. PHARMACEUTICALS,INC./RIDGEFIELD-2013-BI-21452RK

PATIENT
  Age: 84 Year
  Sex: Male
  Weight: 65 kg

DRUGS (4)
  1. PRADAXA [Suspect]
     Indication: CEREBROVASCULAR ACCIDENT PROPHYLAXIS
     Dosage: 220 MG
     Route: 048
     Dates: start: 20130104
  2. LIPITOR/ATORVASTATIN CALCIUM [Concomitant]
     Indication: ATHEROSCLEROSIS PROPHYLAXIS
     Dosage: 10 MG
     Route: 048
     Dates: start: 20130718
  3. MAGMIL/MAGNESIUM HYDROXIDE [Concomitant]
     Indication: GASTROINTESTINAL DISORDER
     Dosage: 1000 MG
     Route: 048
     Dates: start: 20130718
  4. CNS MEDICATION [Concomitant]
     Indication: DEPRESSION

REACTIONS (1)
  - Cerebral infarction [Not Recovered/Not Resolved]
